FAERS Safety Report 6749719-8 (Version None)
Quarter: 2010Q2

REPORT INFORMATION
  Report Type: 
  Country: None (occurrence: None)
  Receive Date: 20100601
  Receipt Date: 20100528
  Transmission Date: 20101027
  Serious: Yes (Death, Other)
  Sender: FDA-Public Use
  Company Number: JP-BAYER-200914591BYL

PATIENT
  Age: 74 Year
  Sex: Male
  Weight: 67 kg

DRUGS (12)
  1. NEXAVAR [Suspect]
     Indication: HEPATIC NEOPLASM MALIGNANT
     Dosage: UNIT DOSE: 200 MG
     Route: 048
     Dates: start: 20091021, end: 20091116
  2. LACTULOSE [Suspect]
     Indication: HEPATIC ENCEPHALOPATHY
     Route: 048
     Dates: start: 20091113
  3. LACTULOSE [Suspect]
     Route: 048
     Dates: start: 20091102, end: 20091109
  4. AMINOLEBAN EN [Suspect]
     Indication: HEPATIC ENCEPHALOPATHY
     Route: 048
     Dates: start: 20091102, end: 20091113
  5. LASIX [Suspect]
     Indication: DRUG USE FOR UNKNOWN INDICATION
     Route: 048
     Dates: start: 20091017, end: 20091116
  6. ALDACTONE [Suspect]
     Indication: DRUG USE FOR UNKNOWN INDICATION
     Route: 048
     Dates: start: 20091017, end: 20091116
  7. TAKEPRON [Concomitant]
     Indication: PROPHYLAXIS AGAINST GASTROINTESTINAL ULCER
     Route: 048
     Dates: start: 20091017
  8. LOXONIN [Concomitant]
     Route: 048
     Dates: start: 20091003
  9. MUCOSTA [Concomitant]
     Indication: PROPHYLAXIS AGAINST GASTROINTESTINAL ULCER
     Route: 048
     Dates: start: 20091003
  10. GABAPEN [Concomitant]
     Route: 048
     Dates: start: 20091003
  11. DECADRON [Concomitant]
     Route: 048
     Dates: start: 20091010
  12. SOLDEM 3A [Concomitant]
     Route: 042
     Dates: start: 20091116, end: 20091119

REACTIONS (7)
  - ASCITES [None]
  - DEATH [None]
  - DEHYDRATION [None]
  - DIARRHOEA [None]
  - HEPATIC ENCEPHALOPATHY [None]
  - PLEURAL EFFUSION [None]
  - RASH [None]
